FAERS Safety Report 20941680 (Version 3)
Quarter: 2022Q3

REPORT INFORMATION
  Report Type: Spontaneous
  Country: FR (occurrence: FR)
  Receive Date: 20220610
  Receipt Date: 20220711
  Transmission Date: 20221027
  Serious: Yes (Hospitalization)
  Sender: FDA-Public Use
  Company Number: FR-ROCHE-2908009

PATIENT
  Age: 67 Year
  Sex: Male
  Weight: 70.7 kg

DRUGS (52)
  1. DOXORUBICIN [Suspect]
     Active Substance: DOXORUBICIN
     Indication: Diffuse large B-cell lymphoma
     Dosage: 91 MILLIGRAM (21 DAY),
     Route: 042
     Dates: start: 20210826
  2. DOXORUBICIN [Suspect]
     Active Substance: DOXORUBICIN
     Dosage: 50 MILLIGRAM/SQ. METER, WEEK (THE PATIENT RECEIVED THE MOST RECENT DOSE OF STUDY DRUG PRIOR TO SERIO
     Route: 042
     Dates: start: 20210826, end: 20210826
  3. PREDNISONE [Suspect]
     Active Substance: PREDNISONE
     Indication: Diffuse large B-cell lymphoma
     Dosage: 100 MILLIGRAM, ONCE A DAY
     Route: 048
     Dates: start: 20210826
  4. CYCLOPHOSPHAMIDE [Suspect]
     Active Substance: CYCLOPHOSPHAMIDE
     Indication: Diffuse large B-cell lymphoma
     Dosage: 1362.5 MILLIGRAM (21 DAY)
     Route: 042
     Dates: start: 20210826
  5. CYCLOPHOSPHAMIDE [Suspect]
     Active Substance: CYCLOPHOSPHAMIDE
     Dosage: 750  MILLIGRAM/SQ. METER
     Route: 042
     Dates: start: 20210826
  6. GLOFITAMAB [Suspect]
     Active Substance: GLOFITAMAB
     Indication: Diffuse large B-cell lymphoma
     Dosage: 2500 MICROGRAM 3 WEEK
     Route: 042
     Dates: start: 20210923
  7. GLOFITAMAB [Suspect]
     Active Substance: GLOFITAMAB
     Dosage: 30 MILLIGRAM, 21 DAY
     Route: 042
     Dates: start: 20210923
  8. RITUXIMAB [Suspect]
     Active Substance: RITUXIMAB
     Indication: Diffuse large B-cell lymphoma
     Dosage: 680 MILLIGRAM/SQ. METER
     Route: 042
     Dates: start: 20210826
  9. RITUXIMAB [Suspect]
     Active Substance: RITUXIMAB
     Dosage: 375 MILLIGRAM/SQ. METER
     Route: 042
     Dates: start: 20210826
  10. VINCRISTINE [Suspect]
     Active Substance: VINCRISTINE
     Indication: Diffuse large B-cell lymphoma
     Dosage: 2 MILLIGRAM (21 DAY)
     Route: 042
     Dates: start: 20210826
  11. VINCRISTINE [Suspect]
     Active Substance: VINCRISTINE
     Dosage: 1.4 MILLIGRAM/SQ. METER
     Route: 042
     Dates: start: 20210826
  12. ALLOPURINOL [Concomitant]
     Active Substance: ALLOPURINOL
     Indication: Product used for unknown indication
     Dosage: 300 MILLIGRAM
     Route: 065
     Dates: start: 20210826
  13. ALLOPURINOL [Concomitant]
     Active Substance: ALLOPURINOL
     Dosage: ONGOING NO
     Route: 065
     Dates: start: 20210823, end: 20211007
  14. FILGRASTIM [Concomitant]
     Active Substance: FILGRASTIM
     Indication: Product used for unknown indication
     Dosage: UNK (48 U)
     Route: 065
     Dates: start: 20210831, end: 20210906
  15. FILGRASTIM [Concomitant]
     Active Substance: FILGRASTIM
     Dosage: ONGOING NO
     Route: 065
     Dates: start: 20211012, end: 20211018
  16. FILGRASTIM [Concomitant]
     Active Substance: FILGRASTIM
     Dosage: ONGOING NO
     Route: 065
     Dates: start: 20211104, end: 20211109
  17. FILGRASTIM [Concomitant]
     Active Substance: FILGRASTIM
     Dosage: ONGOING NO
     Route: 065
     Dates: start: 20211124, end: 20211129
  18. FILGRASTIM [Concomitant]
     Active Substance: FILGRASTIM
     Dosage: ONGOING NO
     Route: 065
     Dates: start: 20211215, end: 20211220
  19. LEUCOVORIN CALCIUM [Concomitant]
     Active Substance: LEUCOVORIN CALCIUM
     Indication: Product used for unknown indication
     Dosage: 50 MILLIGRAM (ONGOING YES)
     Route: 065
     Dates: start: 20210826
  20. VALACYCLOVIR HYDROCHLORIDE [Concomitant]
     Active Substance: VALACYCLOVIR HYDROCHLORIDE
     Indication: Product used for unknown indication
     Dosage: 1 GRAM (ONGOING YES )
     Route: 065
     Dates: start: 20210826
  21. BACTRIM [Concomitant]
     Active Substance: SULFAMETHOXAZOLE\TRIMETHOPRIM
     Indication: Product used for unknown indication
     Dosage: UNK (400 MG/80 MG) ONGOING YES
     Route: 065
     Dates: start: 20210826
  22. DEXAMETHASONE [Concomitant]
     Active Substance: DEXAMETHASONE
     Indication: Premedication
     Dosage: 20 MILLIGRAM
     Route: 042
     Dates: start: 20210923, end: 20210923
  23. CALCIUM PHOSPHATE, DIBASIC, ANHYDROUS\MAGNESIUM GLYCEROPHOSPHATE\PHOSP [Concomitant]
     Active Substance: CALCIUM PHOSPHATE, DIBASIC, ANHYDROUS\MAGNESIUM GLYCEROPHOSPHATE\PHOSPHORIC ACID\SODIUM PHOSPHATE, D
     Indication: Product used for unknown indication
     Dosage: UNK
     Route: 065
     Dates: start: 20211214, end: 20211228
  24. Loxen [Concomitant]
     Indication: Hypertension
     Dosage: UNK (ONGOING YES )
     Route: 065
     Dates: start: 20210905
  25. PREGABALIN [Concomitant]
     Active Substance: PREGABALIN
     Indication: Product used for unknown indication
     Dosage: UNK
     Route: 065
     Dates: start: 20210115, end: 20210116
  26. ACETAMINOPHEN [Concomitant]
     Active Substance: ACETAMINOPHEN
     Indication: Premedication
     Dosage: 1 GRAM ONGOING NO
     Route: 048
     Dates: start: 20210826, end: 20210826
  27. ACETAMINOPHEN [Concomitant]
     Active Substance: ACETAMINOPHEN
     Dosage: 1 GRAM ONGOING NO
     Route: 048
     Dates: start: 20210916, end: 20210916
  28. ACETAMINOPHEN [Concomitant]
     Active Substance: ACETAMINOPHEN
     Dosage: 1 GRAM ONGOING NO
     Route: 048
     Dates: start: 20210923
  29. ACETAMINOPHEN [Concomitant]
     Active Substance: ACETAMINOPHEN
     Dosage: 1 GRAM ONGOING NO
     Route: 048
     Dates: start: 20211007, end: 20211007
  30. ACETAMINOPHEN [Concomitant]
     Active Substance: ACETAMINOPHEN
     Dosage: 1000 MILLIGRAM ONGOING NO
     Route: 048
     Dates: start: 20211103, end: 20211103
  31. ACETAMINOPHEN [Concomitant]
     Active Substance: ACETAMINOPHEN
     Dosage: 1 GRAM ONGOING NO
     Route: 048
     Dates: start: 20211207, end: 20211207
  32. ACETAMINOPHEN [Concomitant]
     Active Substance: ACETAMINOPHEN
     Dosage: 1000 MILLIGRAM ONGOING NO
     Route: 048
     Dates: start: 20211123, end: 20211123
  33. ACETAMINOPHEN [Concomitant]
     Active Substance: ACETAMINOPHEN
     Dosage: 1000 MILLIGRAM ONGOING NO
     Route: 048
     Dates: start: 20211116, end: 20211116
  34. ACETAMINOPHEN [Concomitant]
     Active Substance: ACETAMINOPHEN
     Dosage: 1000 MILLIGRAM ONGOING NO
     Route: 048
     Dates: start: 20211214, end: 20211214
  35. ACETAMINOPHEN [Concomitant]
     Active Substance: ACETAMINOPHEN
     Dosage: 1000 MILLIGRAM ONGOING NO
     Route: 048
     Dates: start: 20211028, end: 20211028
  36. ACETAMINOPHEN [Concomitant]
     Active Substance: ACETAMINOPHEN
     Dosage: 1 GRAM ONGOING NO
     Route: 048
     Dates: start: 20210930, end: 20210930
  37. ACETAMINOPHEN [Concomitant]
     Active Substance: ACETAMINOPHEN
     Dosage: 1000 MILLIGRAM ONGOING NO
     Route: 048
     Dates: start: 20211014, end: 20211014
  38. LORATADINE [Concomitant]
     Active Substance: LORATADINE
     Indication: Premedication
     Dosage: 10 MILLIGRAM (ONGOING NO)
     Route: 048
     Dates: start: 20210826, end: 20210826
  39. LORATADINE [Concomitant]
     Active Substance: LORATADINE
     Dosage: 10 MILLIGRAM (ONGOING NO)
     Route: 048
     Dates: start: 20210916, end: 20210916
  40. LORATADINE [Concomitant]
     Active Substance: LORATADINE
     Dosage: 10 MILLIGRAM (ONGOING NO)
     Route: 048
     Dates: start: 20210923, end: 20210923
  41. LORATADINE [Concomitant]
     Active Substance: LORATADINE
     Dosage: 10 MILLIGRAM (ONGOING NO)
     Route: 048
     Dates: start: 20210930, end: 20210930
  42. LORATADINE [Concomitant]
     Active Substance: LORATADINE
     Dosage: 10 MILLIGRAM (ONGOING NO)
     Route: 048
     Dates: start: 20211007, end: 20211007
  43. LORATADINE [Concomitant]
     Active Substance: LORATADINE
     Dosage: 10 MILLIGRAM (ONGOING NO)
     Route: 048
     Dates: start: 20211014, end: 20211014
  44. LORATADINE [Concomitant]
     Active Substance: LORATADINE
     Dosage: 10 MILLIGRAM (ONGOING NO)
     Route: 048
     Dates: start: 20211028, end: 20211028
  45. LORATADINE [Concomitant]
     Active Substance: LORATADINE
     Dosage: 10 MILLIGRAM (ONGOING NO)
     Route: 048
     Dates: start: 20211103, end: 20211103
  46. LORATADINE [Concomitant]
     Active Substance: LORATADINE
     Dosage: 10 MILLIGRAM (ONGOING NO)
     Route: 048
     Dates: start: 20211116, end: 20211116
  47. LORATADINE [Concomitant]
     Active Substance: LORATADINE
     Dosage: (ONGOING NO)
     Route: 048
     Dates: start: 20211123, end: 20211123
  48. LORATADINE [Concomitant]
     Active Substance: LORATADINE
     Dosage: 10 MILLIGRAM (ONGOING NO)
     Route: 048
     Dates: start: 20211207, end: 20211207
  49. LORATADINE [Concomitant]
     Active Substance: LORATADINE
     Dosage: 10 MILLIGRAM (ONGOING NO)
     Route: 048
     Dates: start: 20211214, end: 20211214
  50. ESOMEPRAZOLE [Concomitant]
     Active Substance: ESOMEPRAZOLE
     Indication: Prophylaxis against gastrointestinal ulcer
     Dosage: ONGOING NO
     Route: 065
     Dates: start: 20210917, end: 20210920
  51. ESOMEPRAZOLE [Concomitant]
     Active Substance: ESOMEPRAZOLE
     Dosage: ONGOING NO
     Route: 065
     Dates: start: 20211008, end: 20211011
  52. FLUTICASONE [Concomitant]
     Active Substance: FLUTICASONE
     Indication: Product used for unknown indication
     Dosage: ONGOING YES
     Route: 065

REACTIONS (4)
  - Neutrophil count decreased [Recovering/Resolving]
  - Pyrexia [Recovering/Resolving]
  - Diarrhoea [Recovering/Resolving]
  - Febrile neutropenia [Recovered/Resolved]

NARRATIVE: CASE EVENT DATE: 20210904
